FAERS Safety Report 6577394-4 (Version None)
Quarter: 2010Q1

REPORT INFORMATION
  Report Type: 
  Country: None (occurrence: None)
  Receive Date: 20100211
  Receipt Date: 20100129
  Transmission Date: 20100710
  Serious: Yes (Other)
  Sender: FDA-Public Use
  Company Number: US-RANBAXY-2010RR-30889

PATIENT
  Age: 71 Year
  Sex: Male

DRUGS (6)
  1. FENOFIBRATE TABLETS [Suspect]
     Indication: DRUG USE FOR UNKNOWN INDICATION
     Dosage: 200 MG, QD
     Route: 065
     Dates: start: 20010606, end: 20020904
  2. FENOFIBRATE TABLETS [Suspect]
     Dosage: 160 MG, QD
     Route: 065
     Dates: start: 20061110, end: 20090324
  3. ROSIGLITAZONE [Suspect]
     Indication: DRUG USE FOR UNKNOWN INDICATION
     Dosage: 4 MG, QD
     Dates: start: 20010927
  4. ROSIGLITAZONE [Suspect]
     Dosage: 4 MG, BID
     Dates: end: 20061209
  5. SIMVASTATIN [Concomitant]
     Indication: DRUG USE FOR UNKNOWN INDICATION
     Dosage: 5 MG, QD
     Route: 065
  6. PIOGLITAZONE [Concomitant]
     Dosage: 15 MG, QD
     Dates: start: 20071002, end: 20080206

REACTIONS (2)
  - DRUG INTERACTION [None]
  - HIGH DENSITY LIPOPROTEIN DECREASED [None]
